FAERS Safety Report 15749179 (Version 16)
Quarter: 2020Q1

REPORT INFORMATION
  Report Type: Report from Study
  Country: CA (occurrence: CA)
  Receive Date: 20181221
  Receipt Date: 20200304
  Transmission Date: 20200409
  Serious: Yes (Hospitalization, Other)
  Sender: FDA-Public Use
  Company Number: PHHY2016CA109152

PATIENT
  Age: 34 Year
  Sex: Female

DRUGS (26)
  1. ILARIS [Suspect]
     Active Substance: CANAKINUMAB
     Dosage: 150 MG, Q2W
     Route: 058
     Dates: start: 20191021
  2. ILARIS [Suspect]
     Active Substance: CANAKINUMAB
     Dosage: UNK
     Route: 058
     Dates: start: 20171020
  3. ILARIS [Suspect]
     Active Substance: CANAKINUMAB
     Dosage: 150 MG, Q2W
     Route: 058
     Dates: start: 20180809
  4. ILARIS [Suspect]
     Active Substance: CANAKINUMAB
     Dosage: 150 MG, Q2W
     Route: 058
     Dates: start: 20190523
  5. ILARIS [Suspect]
     Active Substance: CANAKINUMAB
     Dosage: 150 MG, Q2W
     Route: 058
     Dates: start: 20190619
  6. ILARIS [Suspect]
     Active Substance: CANAKINUMAB
     Dosage: 150 MG, Q2W
     Route: 058
     Dates: start: 20190818
  7. ILARIS [Suspect]
     Active Substance: CANAKINUMAB
     Dosage: 150 MG, EVERY 2 WEEKS
     Route: 058
     Dates: start: 20200213
  8. ILARIS [Suspect]
     Active Substance: CANAKINUMAB
     Dosage: 150 MG, Q2W
     Route: 058
     Dates: start: 20181227
  9. ILARIS [Suspect]
     Active Substance: CANAKINUMAB
     Dosage: 150 MG, Q2W
     Route: 058
     Dates: start: 20190801
  10. PREDNISONE. [Concomitant]
     Active Substance: PREDNISONE
     Indication: PRODUCT USED FOR UNKNOWN INDICATION
     Dosage: 40 MG, QD
     Route: 065
     Dates: start: 20190120
  11. ILARIS [Suspect]
     Active Substance: CANAKINUMAB
     Dosage: 150 MG, EVERY 2 WEEKS
     Route: 058
     Dates: start: 20160707
  12. ILARIS [Suspect]
     Active Substance: CANAKINUMAB
     Dosage: UNK
     Route: 065
     Dates: start: 20200115
  13. ILARIS [Suspect]
     Active Substance: CANAKINUMAB
     Dosage: UNK
     Route: 065
     Dates: start: 20200130
  14. ILARIS [Suspect]
     Active Substance: CANAKINUMAB
     Dosage: 150 MG, Q2W
     Route: 058
     Dates: start: 20181113
  15. ILARIS [Suspect]
     Active Substance: CANAKINUMAB
     Dosage: 150 MG, Q2W
     Route: 058
     Dates: start: 20190207
  16. ILARIS [Suspect]
     Active Substance: CANAKINUMAB
     Dosage: 150 MG, Q2W
     Route: 058
     Dates: start: 20190425
  17. ILARIS [Suspect]
     Active Substance: CANAKINUMAB
     Dosage: 150 MG, Q2W
     Route: 058
     Dates: start: 20191230
  18. ILARIS [Suspect]
     Active Substance: CANAKINUMAB
     Dosage: 150 MG, EVERY 4 WEEKS
     Route: 058
     Dates: start: 20161114
  19. ILARIS [Suspect]
     Active Substance: CANAKINUMAB
     Indication: BONE DISORDER
     Dosage: 300 MG, EVERY 4 WEEKS
     Route: 058
     Dates: start: 20160707
  20. ILARIS [Suspect]
     Active Substance: CANAKINUMAB
     Dosage: 150 MG, EVERY 2 WEEKS
     Route: 058
     Dates: start: 20171006
  21. ILARIS [Suspect]
     Active Substance: CANAKINUMAB
     Dosage: 150 MG, Q2W
     Route: 058
     Dates: start: 20180712
  22. ILARIS [Suspect]
     Active Substance: CANAKINUMAB
     Dosage: 150 MG, Q2W
     Route: 058
     Dates: start: 20190110
  23. ILARIS [Suspect]
     Active Substance: CANAKINUMAB
     Dosage: 150 MG, Q2W
     Route: 058
     Dates: start: 20190327
  24. ILARIS [Suspect]
     Active Substance: CANAKINUMAB
     Dosage: 150 MG, Q2W
     Route: 058
     Dates: start: 20190606
  25. ILARIS [Suspect]
     Active Substance: CANAKINUMAB
     Dosage: 150 MG, Q2W
     Route: 058
     Dates: start: 20191120
  26. DALTEPARIN [Concomitant]
     Active Substance: DALTEPARIN
     Indication: PRODUCT USED FOR UNKNOWN INDICATION
     Dosage: 5000 AND 10000 UNITS ALTERNATE DAYS
     Route: 058
     Dates: start: 20181117

REACTIONS (38)
  - Pain [Not Recovered/Not Resolved]
  - Headache [Unknown]
  - Product storage error [Unknown]
  - Grunting [Unknown]
  - Blood pressure abnormal [Not Recovered/Not Resolved]
  - Muscle spasms [Unknown]
  - Asthenia [Unknown]
  - Gait disturbance [Recovering/Resolving]
  - Arthralgia [Unknown]
  - Deep vein thrombosis [Unknown]
  - Malaise [Unknown]
  - Nasopharyngitis [Unknown]
  - Blood pressure increased [Not Recovered/Not Resolved]
  - Dysuria [Unknown]
  - Vomiting [Unknown]
  - Chest pain [Unknown]
  - Hypocalcaemia [Unknown]
  - Paraesthesia [Unknown]
  - Dizziness [Unknown]
  - Syncope [Not Recovered/Not Resolved]
  - Skin lesion [Recovering/Resolving]
  - Erythema [Unknown]
  - Product use in unapproved indication [Unknown]
  - Hypoaesthesia [Unknown]
  - Diarrhoea [Unknown]
  - Blood aldosterone increased [Unknown]
  - Condition aggravated [Unknown]
  - Pulmonary embolism [Unknown]
  - Abdominal pain [Unknown]
  - Hyperhidrosis [Unknown]
  - Dyspnoea [Unknown]
  - Heart rate increased [Unknown]
  - Blood test abnormal [Unknown]
  - Influenza like illness [Not Recovered/Not Resolved]
  - Gingival pain [Recovering/Resolving]
  - Urinary tract infection [Unknown]
  - Therapeutic product effect incomplete [Unknown]
  - Abdominal pain upper [Unknown]

NARRATIVE: CASE EVENT DATE: 2016
